FAERS Safety Report 10146517 (Version 1)
Quarter: 2014Q2

REPORT INFORMATION
  Report Type: Spontaneous
  Country: US (occurrence: None)
  Receive Date: 20140430
  Receipt Date: 20140430
  Transmission Date: 20141212
  Serious: Yes (Hospitalization)
  Sender: FDA-Public Use
  Company Number: None

PATIENT
  Age: 70 Year
  Sex: Female

DRUGS (5)
  1. DIGOXIN [Suspect]
     Indication: ATRIAL FIBRILLATION
     Route: 048
     Dates: start: 20131226, end: 20140104
  2. ATORVASTATIN [Concomitant]
  3. AMIODARONE [Concomitant]
  4. AMLODIPINE [Concomitant]
  5. METOPROLOL [Concomitant]

REACTIONS (6)
  - Nausea [None]
  - Vomiting [None]
  - Abdominal pain [None]
  - Hypophagia [None]
  - Renal failure acute [None]
  - Toxicity to various agents [None]
